FAERS Safety Report 5782887-3 (Version None)
Quarter: 2008Q2

REPORT INFORMATION
  Report Type: 
  Country: None (occurrence: None)
  Receive Date: 20080624
  Receipt Date: 20080613
  Transmission Date: 20081010
  Serious: Yes (Other)
  Sender: FDA-Public Use
  Company Number: GB-JNJFOC-20080603779

PATIENT
  Age: 17 Year
  Sex: Male

DRUGS (6)
  1. CONCERTA [Suspect]
     Indication: AGGRESSION
     Route: 065
  2. CONCERTA [Suspect]
     Indication: ANXIETY
     Route: 065
  3. CONCERTA [Suspect]
     Indication: AUTISM
     Route: 065
  4. RISPERDAL CONSTA [Suspect]
     Indication: AGGRESSION
     Route: 030
  5. RISPERDAL CONSTA [Suspect]
     Indication: ANXIETY
     Route: 030
  6. RISPERDAL CONSTA [Suspect]
     Indication: AUTISM
     Route: 030

REACTIONS (2)
  - ANXIETY [None]
  - BLOOD PROLACTIN INCREASED [None]
